FAERS Safety Report 8893361 (Version 1)
Quarter: 2012Q4

REPORT INFORMATION
  Report Type: 
  Country: US (occurrence: US)
  Receive Date: 20121107
  Receipt Date: 20121107
  Transmission Date: 20130627
  Serious: No
  Sender: FDA-Public Use
  Company Number: US-AMGEN-USASP2011051000

PATIENT
  Age: 47 Year
  Sex: Female
  Weight: 49.89 kg

DRUGS (6)
  1. ENBREL [Suspect]
     Indication: PRODUCT USED FOR UNKNOWN INDICATION
     Dosage: 50 mg, qwk
  2. CELEBREX [Concomitant]
     Dosage: 200 mg, UNK
  3. METHOTREXATE [Concomitant]
     Dosage: 2.5 mg, UNK
  4. FOLIC ACID [Concomitant]
     Dosage: 1 mg, UNK
  5. VITAMIN D /00107901/ [Concomitant]
     Dosage: 1000 IU, UNK
  6. CALCIUM + VITAMIN D [Concomitant]
     Dosage: UNK

REACTIONS (1)
  - Injection site urticaria [Unknown]
